FAERS Safety Report 5065291-5 (Version None)
Quarter: 2006Q3

REPORT INFORMATION
  Report Type: 
  Country: None (occurrence: None)
  Receive Date: 20060725
  Receipt Date: 20060711
  Transmission Date: 20061208
  Serious: Yes (Other)
  Sender: FDA-Public Use
  Company Number: 2006-BP-07870RO

PATIENT
  Age: 29 Year
  Sex: Male

DRUGS (1)
  1. LIDOCAINE [Suspect]
     Indication: ANAESTHESIA
     Dosage: , ID
     Route: 026

REACTIONS (13)
  - BLINDNESS UNILATERAL [None]
  - CATARACT [None]
  - CONJUNCTIVAL OEDEMA [None]
  - EYE INJURY [None]
  - INTRAOCULAR PRESSURE INCREASED [None]
  - MYDRIASIS [None]
  - OCULAR HYPERTENSION [None]
  - POSTERIOR CAPSULE OPACIFICATION [None]
  - RETINAL ARTERY OCCLUSION [None]
  - RETINAL ARTERY SPASM [None]
  - RETINOGRAM ABNORMAL [None]
  - VISUAL ACUITY REDUCED [None]
  - VITREOUS DISORDER [None]
